FAERS Safety Report 9921884 (Version 1)
Quarter: 2014Q1

REPORT INFORMATION
  Report Type: Report from Study
  Country: CA (occurrence: CA)
  Receive Date: 20140225
  Receipt Date: 20140225
  Transmission Date: 20141002
  Serious: Yes (Other)
  Sender: FDA-Public Use
  Company Number: CA-BRISTOL-MYERS SQUIBB COMPANY-20266045

PATIENT
  Age: 35 Year
  Sex: Female

DRUGS (7)
  1. ORENCIA [Suspect]
     Indication: RHEUMATOID ARTHRITIS
     Dosage: 1DF=750 UNIT NOS.LAST DOSE ON 07NOV13
     Dates: start: 20120308
  2. EPIVAL [Concomitant]
  3. RISPERIDONE [Concomitant]
  4. AMITRIPTYLINE [Concomitant]
  5. PROZAC [Concomitant]
  6. CESAMET [Concomitant]
  7. TRIAMTERENE [Concomitant]

REACTIONS (1)
  - Ankle arthroplasty [Unknown]
